FAERS Safety Report 4975239-7 (Version None)
Quarter: 2006Q2

REPORT INFORMATION
  Report Type: 
  Country: None (occurrence: None)
  Receive Date: 20060417
  Receipt Date: 20060417
  Transmission Date: 20061013
  Serious: Yes (Life-Threatening, Hospitalization, Other)
  Sender: FDA-Public Use
  Company Number: None

PATIENT
  Sex: Female
  Weight: 58.9676 kg

DRUGS (1)
  1. KETEK [Suspect]
     Indication: SINUSITIS
     Dosage: 2 TABLETS    EVERY DAY FOR 5 DA    PO
     Route: 048
     Dates: start: 20060320, end: 20060320

REACTIONS (5)
  - GALLBLADDER OEDEMA [None]
  - HEPATIC ENZYME INCREASED [None]
  - LIVER DISORDER [None]
  - OEDEMA [None]
  - PYREXIA [None]
